FAERS Safety Report 26132162 (Version 1)
Quarter: 2025Q4

REPORT INFORMATION
  Report Type: Spontaneous
  Country: IR (occurrence: IR)
  Receive Date: 20251208
  Receipt Date: 20251208
  Transmission Date: 20260118
  Serious: Yes (Hospitalization)
  Sender: RegCon Holdings
  Company Number: IR-REGCON-2025REG00057

PATIENT
  Age: 18 Year
  Sex: Female
  Weight: 45 kg

DRUGS (1)
  1. BACLOFEN [Suspect]
     Active Substance: BACLOFEN
     Dosage: 750 MG
     Route: 048

REACTIONS (2)
  - Brain stem syndrome [Recovered/Resolved]
  - Toxicity to various agents [Recovered/Resolved]
